FAERS Safety Report 20374225 (Version 1)
Quarter: 2022Q1

REPORT INFORMATION
  Report Type: Spontaneous
  Country: US (occurrence: None)
  Receive Date: 20220125
  Receipt Date: 20220125
  Transmission Date: 20220423
  Serious: Yes (Hospitalization)
  Sender: FDA-Public Use
  Company Number: None

PATIENT
  Sex: Female
  Weight: 83 kg

DRUGS (2)
  1. CISPLATIN [Suspect]
     Active Substance: CISPLATIN
     Dates: end: 20211227
  2. ETOPOSIDE [Suspect]
     Active Substance: ETOPOSIDE
     Dates: end: 20211229

REACTIONS (8)
  - Productive cough [None]
  - Dyspnoea [None]
  - Malaise [None]
  - Pulmonary embolism [None]
  - Anaemia [None]
  - Acute respiratory failure [None]
  - Sepsis [None]
  - Pneumonia [None]

NARRATIVE: CASE EVENT DATE: 20220106
